APPROVED DRUG PRODUCT: METAXALONE
Active Ingredient: METAXALONE
Strength: 800MG
Dosage Form/Route: TABLET;ORAL
Application: A213836 | Product #001
Applicant: NOVAST LABORATORIES LTD
Approved: Oct 21, 2020 | RLD: No | RS: No | Type: DISCN